FAERS Safety Report 5917371-7 (Version None)
Quarter: 2008Q4

REPORT INFORMATION
  Report Type: 
  Country: None (occurrence: None)
  Receive Date: 20081014
  Receipt Date: 20081009
  Transmission Date: 20090506
  Serious: Yes (Life-Threatening)
  Sender: FDA-Public Use
  Company Number: A0715037B

PATIENT
  Sex: Female
  Weight: 3.7 kg

DRUGS (5)
  1. AEROLIN [Suspect]
     Indication: ASTHMA
     Dates: start: 19970101
  2. AEROLIN [Suspect]
     Dates: start: 20080304
  3. CEPHALEXIN [Concomitant]
     Indication: URINARY TRACT INFECTION
     Dates: start: 20080304
  4. BEROTEC [Concomitant]
     Indication: ASTHMA
     Dates: start: 19970101, end: 20071101
  5. SODIUM CHLORIDE 0.9% [Concomitant]
     Indication: ASTHMA
     Dates: start: 20071101

REACTIONS (6)
  - CAESAREAN SECTION [None]
  - DRUG EXPOSURE DURING PREGNANCY [None]
  - DRUG EXPOSURE VIA BREAST MILK [None]
  - MATERNAL DRUGS AFFECTING FOETUS [None]
  - RESUSCITATION [None]
  - UMBILICAL CORD AROUND NECK [None]
